FAERS Safety Report 6499776-1 (Version None)
Quarter: 2009Q4

REPORT INFORMATION
  Report Type: 
  Country: None (occurrence: None)
  Receive Date: 20091214
  Receipt Date: 20091201
  Transmission Date: 20100525
  Serious: Yes (Hospitalization)
  Sender: FDA-Public Use
  Company Number: 1-20772391

PATIENT
  Sex: Male
  Weight: 8.6183 kg

DRUGS (3)
  1. BUPHENYL [Suspect]
     Indication: AMINO ACID METABOLISM DISORDER
     Dosage: 1500 MG Q 8 HRS, GASTROSTOMY TUBE
     Dates: start: 20090201
  2. L-CITRULLINE (MANUFACTURER UNKNOWN) [Suspect]
     Dosage: 500 MG Q 8 HRS, GASTROSTOMY TUBE
     Dates: start: 20090201
  3. VIAGRA [Concomitant]

REACTIONS (5)
  - DEHYDRATION [None]
  - EATING DISORDER [None]
  - GASTROENTERITIS VIRAL [None]
  - IRRITABILITY [None]
  - SOMNOLENCE [None]
